FAERS Safety Report 4377015-5 (Version None)
Quarter: 2004Q2

REPORT INFORMATION
  Report Type: 
  Country: None (occurrence: None)
  Receive Date: 20040614
  Receipt Date: 20040611
  Transmission Date: 20050107
  Serious: Yes (Other)
  Sender: FDA-Public Use
  Company Number: US-GLAXOSMITHKLINE-A0514346A

PATIENT
  Sex: Female

DRUGS (3)
  1. WELLBUTRIN [Suspect]
     Indication: DEPRESSION
     Route: 048
     Dates: start: 20010101, end: 20040510
  2. ACCUPRIL [Concomitant]
  3. LIPITOR [Concomitant]

REACTIONS (3)
  - CLAVICLE FRACTURE [None]
  - GRAND MAL CONVULSION [None]
  - LACERATION [None]
